FAERS Safety Report 22595744 (Version 2)
Quarter: 2023Q2

REPORT INFORMATION
  Report Type: Spontaneous
  Country: FR (occurrence: FR)
  Receive Date: 20230613
  Receipt Date: 20230622
  Transmission Date: 20230722
  Serious: Yes (Death, Hospitalization)
  Sender: FDA-Public Use
  Company Number: None

PATIENT
  Age: 39 Year
  Sex: Male
  Weight: 70 kg

DRUGS (12)
  1. PROPOFOL [Suspect]
     Active Substance: PROPOFOL
     Indication: Sedation
     Dosage: DOSAGE TEXT:	150MG/H (2.1MG/KG/H)
     Route: 042
     Dates: start: 20230520, end: 20230521
  2. PROPOFOL [Suspect]
     Active Substance: PROPOFOL
     Dosage: DOSAGE TEXT:	400MG/H (5.7MG/KG/H)
     Route: 042
     Dates: start: 20230518, end: 20230518
  3. PROPOFOL [Suspect]
     Active Substance: PROPOFOL
     Dosage: DOSAGE TEXT:	250MG/H (3.6MG/KG/H)
     Route: 042
     Dates: start: 20230516, end: 20230516
  4. PROPOFOL [Suspect]
     Active Substance: PROPOFOL
     Dosage: 200MG/H (2.9MG/KG/H)
     Route: 042
     Dates: start: 20230519, end: 20230519
  5. PROPOFOL [Suspect]
     Active Substance: PROPOFOL
     Dosage: 340MG/H (4.9MG/KG/H)
     Route: 042
     Dates: start: 20230517, end: 20230517
  6. NOREPINEPHRINE [Concomitant]
     Active Substance: NOREPINEPHRINE
  7. MIDAZOLAM [Concomitant]
     Active Substance: MIDAZOLAM
  8. SUFENTANIL [Concomitant]
     Active Substance: SUFENTANIL
  9. NOREPINEPHRINE [Concomitant]
     Active Substance: NOREPINEPHRINE
  10. CISATRACURIUM [Concomitant]
     Active Substance: CISATRACURIUM
  11. THIOPENTAL [Concomitant]
     Active Substance: THIOPENTAL
  12. MANNITOL [Concomitant]
     Active Substance: MANNITOL

REACTIONS (1)
  - Propofol infusion syndrome [Fatal]

NARRATIVE: CASE EVENT DATE: 20230521
